FAERS Safety Report 8430577-0 (Version None)
Quarter: 2012Q2

REPORT INFORMATION
  Report Type: 
  Country: None (occurrence: None)
  Receive Date: 20120612
  Receipt Date: 20120605
  Transmission Date: 20120825
  Serious: Yes (Hospitalization)
  Sender: FDA-Public Use
  Company Number: BR-GLAXOSMITHKLINE-B0806914A

PATIENT
  Sex: Male
  Weight: 85 kg

DRUGS (2)
  1. PROPAFENONE HCL [Suspect]
     Indication: ARRHYTHMIA
     Dosage: 300MG TWICE PER DAY
     Route: 048
     Dates: start: 20120301
  2. METOPROLOL SUCCINATE [Concomitant]

REACTIONS (3)
  - ARRHYTHMIA [None]
  - VIRAL INFECTION [None]
  - THYROID DISORDER [None]
